FAERS Safety Report 5490635-X (Version None)
Quarter: 2007Q4

REPORT INFORMATION
  Report Type: 
  Country: None (occurrence: None)
  Receive Date: 20071019
  Receipt Date: 20071012
  Transmission Date: 20080405
  Serious: Yes (Other)
  Sender: FDA-Public Use
  Company Number: CA-ASTRAZENECA-2007UW23998

PATIENT
  Age: 44 Year
  Sex: Male

DRUGS (1)
  1. CRESTOR [Suspect]
     Route: 048

REACTIONS (5)
  - BALANCE DISORDER [None]
  - DYSARTHRIA [None]
  - DYSPHAGIA [None]
  - ELECTROENCEPHALOGRAM ABNORMAL [None]
  - MUSCULAR WEAKNESS [None]
